FAERS Safety Report 18611846 (Version 1)
Quarter: 2020Q4

REPORT INFORMATION
  Report Type: Report from Study
  Country: US (occurrence: US)
  Receive Date: 20201214
  Receipt Date: 20201214
  Transmission Date: 20210114
  Serious: Yes (Hospitalization)
  Sender: FDA-Public Use
  Company Number: US-AMGEN-USACT2020200392

PATIENT
  Age: 60 Year
  Sex: Male
  Weight: 111.36 kg

DRUGS (21)
  1. EVOLOCUMAB [Suspect]
     Active Substance: EVOLOCUMAB
     Indication: DYSLIPIDAEMIA
     Dosage: UNK MILLILITRE
     Route: 058
     Dates: start: 20160908
  2. ATORVASTATIN [Suspect]
     Active Substance: ATORVASTATIN
     Indication: DYSLIPIDAEMIA
     Dosage: 80 MILLIGRAM
     Route: 065
     Dates: start: 20130408
  3. LISINOPRIL. [Concomitant]
     Active Substance: LISINOPRIL
     Dosage: 5 MILLIGRAM
     Dates: start: 20121103
  4. TAMSULOSIN [Concomitant]
     Active Substance: TAMSULOSIN
     Dosage: 0.4 MILLIGRAM
     Dates: start: 20130323
  5. MOTRIN [Concomitant]
     Active Substance: IBUPROFEN
     Dosage: 600 MILLIGRAM
     Dates: start: 20191125
  6. LIDOCAINE. [Concomitant]
     Active Substance: LIDOCAINE
     Dosage: 4 UNK
     Dates: start: 20191125
  7. INSULIN [Concomitant]
     Active Substance: INSULIN NOS
     Dosage: UNK
  8. LIPITOR [Suspect]
     Active Substance: ATORVASTATIN CALCIUM
     Indication: DYSLIPIDAEMIA
     Dosage: 80 MILLIGRAM
     Route: 065
     Dates: start: 20130318
  9. PLAVIX [Concomitant]
     Active Substance: CLOPIDOGREL BISULFATE
     Dosage: 75 MILLIGRAM
     Dates: start: 20120104
  10. METOPROLOL. [Concomitant]
     Active Substance: METOPROLOL
     Dosage: 25 MILLIGRAM
     Dates: start: 20130326
  11. SPIRONOLACTONE. [Concomitant]
     Active Substance: SPIRONOLACTONE
     Dosage: 50 MILLIGRAM
     Dates: start: 20181015
  12. LEVOTHYROXINE. [Concomitant]
     Active Substance: LEVOTHYROXINE
     Dosage: 50 MICROGRAM
     Dates: start: 20180918
  13. ALBUTEROL SULFATE. [Concomitant]
     Active Substance: ALBUTEROL SULFATE
     Dosage: 2 UNK
     Dates: start: 20180103
  14. TICAGRELOR. [Concomitant]
     Active Substance: TICAGRELOR
     Dosage: UNK
  15. APIXABAN [Concomitant]
     Active Substance: APIXABAN
     Dosage: UNK
  16. BUMEX [Concomitant]
     Active Substance: BUMETANIDE
     Dosage: 2 MILLIGRAM
     Dates: start: 20181013
  17. ASPIRIN [ACETYLSALICYLIC ACID] [Concomitant]
     Active Substance: ASPIRIN
     Dosage: 81 MILLIGRAM
     Dates: start: 20120612
  18. INSULIN GLARGINE [Concomitant]
     Active Substance: INSULIN GLARGINE
     Dosage: 15 UNK
     Dates: start: 20120609
  19. NAPROXEN. [Concomitant]
     Active Substance: NAPROXEN
     Dosage: 500 MILLIGRAM
     Dates: start: 20120404
  20. HUMALOG [Concomitant]
     Active Substance: INSULIN LISPRO
     Dosage: 100 UNK
     Dates: start: 20120609
  21. CLOPIDOGREL [Concomitant]
     Active Substance: CLOPIDOGREL BISULFATE
     Dosage: UNK

REACTIONS (1)
  - Cardiac failure congestive [Recovered/Resolved]

NARRATIVE: CASE EVENT DATE: 20201027
